FAERS Safety Report 6880687-4 (Version None)
Quarter: 2010Q3

REPORT INFORMATION
  Report Type: 
  Country: None (occurrence: None)
  Receive Date: 20100728
  Receipt Date: 20100714
  Transmission Date: 20110219
  Serious: No
  Sender: FDA-Public Use
  Company Number: US-BIOGENIDEC-2010BI024056

PATIENT
  Age: 50 Year
  Sex: Female

DRUGS (3)
  1. TYSABRI [Suspect]
     Indication: MULTIPLE SCLEROSIS
     Route: 042
     Dates: start: 20061221, end: 20080422
  2. TYSABRI [Suspect]
     Route: 042
     Dates: start: 20080527, end: 20080818
  3. TYSABRI [Suspect]
     Route: 042
     Dates: start: 20100316

REACTIONS (2)
  - FATIGUE [None]
  - MALAISE [None]
